FAERS Safety Report 10240285 (Version 2)
Quarter: 2014Q3

REPORT INFORMATION
  Report Type: Spontaneous
  Country: BR (occurrence: BR)
  Receive Date: 20140617
  Receipt Date: 20140714
  Transmission Date: 20150326
  Serious: No
  Sender: FDA-Public Use
  Company Number: PHHY2014BR073383

PATIENT
  Age: 7 Year
  Sex: Male

DRUGS (11)
  1. XOLAIR [Suspect]
     Active Substance: OMALIZUMAB
     Dosage: 600 MG, EACH 15 DAYS
  2. XOLAIR [Suspect]
     Active Substance: OMALIZUMAB
     Indication: ALLERGIC KERATITIS
     Dosage: 600 MG, EACH 15 DAYS
  3. XOLAIR [Suspect]
     Active Substance: OMALIZUMAB
     Indication: OFF LABEL USE
     Dosage: 600 MG, EACH 15 DAYS
  4. XOLAIR [Suspect]
     Active Substance: OMALIZUMAB
     Dosage: 600 MG, EACH 15 DAYS
  5. XOLAIR [Suspect]
     Active Substance: OMALIZUMAB
     Dosage: 600 MG, EACH 15 DAYS
  6. CORTICOSTEROIDS [Suspect]
     Active Substance: CORTICOSTEROID NOS
     Dosage: UNK UKN, FREQUENTLY
  7. TACROLIMUS. [Suspect]
     Active Substance: TACROLIMUS
     Dosage: UNK UKN, UNK
  8. XOLAIR [Suspect]
     Active Substance: OMALIZUMAB
     Dosage: 600 MG, EACH 15 DAYS
  9. CICLOSPORIN [Suspect]
     Active Substance: CYCLOSPORINE
     Dosage: UNK UKN, UNK
  10. ANTIHISTAMINES [Suspect]
     Active Substance: ANTIHISTAMINES NOS
     Dosage: UNK UKN, UNK
  11. XOLAIR [Suspect]
     Active Substance: OMALIZUMAB
     Dosage: 600 MG, EACH 15 DAYS

REACTIONS (4)
  - Ocular discomfort [Recovering/Resolving]
  - Blood immunoglobulin E increased [Unknown]
  - Eye pruritus [Recovering/Resolving]
  - Photophobia [Recovering/Resolving]
